FAERS Safety Report 10237019 (Version 5)
Quarter: 2016Q3

REPORT INFORMATION
  Report Type: Report from Study
  Country: US (occurrence: US)
  Receive Date: 20140613
  Receipt Date: 20160808
  Transmission Date: 20161109
  Serious: Yes (Other)
  Sender: FDA-Public Use
  Company Number: US-BAYER-2014-052609

PATIENT
  Age: 69 Year
  Sex: Male

DRUGS (18)
  1. NEXAVAR [Suspect]
     Active Substance: SORAFENIB
     Indication: THYROID CANCER
     Dosage: 400 MG, BID
     Route: 048
     Dates: start: 20120531
  2. NEXAVAR [Suspect]
     Active Substance: SORAFENIB
     Indication: THYROID CANCER
     Dosage: 1 TABLET TWICE A DAY TO ALTERNATE WITH 1 TABLET IN THE MORNING AND 2 TABLETS IN THE EVENING
     Route: 048
  3. ATORVASTATIN [Concomitant]
     Active Substance: ATORVASTATIN
  4. WARFARIN [Concomitant]
     Active Substance: WARFARIN
  5. ESOMEPRAZOLE [Concomitant]
     Active Substance: ESOMEPRAZOLE
  6. GLIMEPIRIDE. [Concomitant]
     Active Substance: GLIMEPIRIDE
  7. POTASSIUM [Concomitant]
     Active Substance: POTASSIUM
  8. NEXAVAR [Suspect]
     Active Substance: SORAFENIB
     Indication: THYROID CANCER
     Dosage: UNK
     Route: 048
     Dates: start: 20120116
  9. NEXAVAR [Suspect]
     Active Substance: SORAFENIB
     Indication: THYROID CANCER
     Dosage: 2 TABLETS DAILY
     Route: 048
  10. NEXAVAR [Suspect]
     Active Substance: SORAFENIB
     Indication: THYROID CANCER
     Dosage: 1 TABLET TWICE A DAY TO ALTERNATE WITH 1 TABLET IN THE MORNING AND 2 TABLETS IN THE EVENING
     Dates: start: 2012
  11. NEXAVAR [Suspect]
     Active Substance: SORAFENIB
     Indication: THYROID CANCER
     Dosage: 1 TABLET TWICE A DAY TO ALTERNATE WITH 1 TABLET IN THE MORNING AND 2 TABLETS IN THE EVENING
     Route: 048
  12. HYDROXYCHLOROQUINE [Concomitant]
     Active Substance: HYDROXYCHLOROQUINE
  13. DIOVAN [Concomitant]
     Active Substance: VALSARTAN
  14. FUROSEMIDE. [Concomitant]
     Active Substance: FUROSEMIDE
  15. KOMBIGLYZE XR [Concomitant]
     Active Substance: METFORMIN HYDROCHLORIDE\SAXAGLIPTIN HYDROCHLORIDE
  16. TOPROL XL [Concomitant]
     Active Substance: METOPROLOL SUCCINATE
  17. STROVITE [Concomitant]
  18. CARTIA XT [Concomitant]
     Active Substance: DILTIAZEM HYDROCHLORIDE

REACTIONS (12)
  - Off label use [None]
  - Burning sensation [Unknown]
  - Peripheral swelling [Unknown]
  - Acne [None]
  - Abasia [Unknown]
  - Blister [Unknown]
  - Dry skin [Not Recovered/Not Resolved]
  - Pain in extremity [Not Recovered/Not Resolved]
  - Skin lesion [Not Recovered/Not Resolved]
  - Alopecia [Not Recovered/Not Resolved]
  - Impaired healing [Not Recovered/Not Resolved]
  - Skin fissures [Not Recovered/Not Resolved]

NARRATIVE: CASE EVENT DATE: 2012
